FAERS Safety Report 4493227-4 (Version None)
Quarter: 2004Q4

REPORT INFORMATION
  Report Type: 
  Country: None (occurrence: None)
  Receive Date: 20041104
  Receipt Date: 20041027
  Transmission Date: 20050328
  Serious: Yes (Other)
  Sender: FDA-Public Use
  Company Number: PHRM2004FR03238

PATIENT
  Age: 62 Year
  Sex: Male

DRUGS (1)
  1. LESCOL [Suspect]
     Indication: HYPERCHOLESTEROLAEMIA

REACTIONS (2)
  - ECZEMA [None]
  - PSEUDO LYMPHOMA [None]
